FAERS Safety Report 15886019 (Version 4)
Quarter: 2019Q2

REPORT INFORMATION
  Report Type: Report from Study
  Country: US (occurrence: US)
  Receive Date: 20190129
  Receipt Date: 20190425
  Transmission Date: 20190711
  Serious: No
  Sender: FDA-Public Use
  Company Number: PHEH2019US004340

PATIENT
  Sex: Male

DRUGS (1)
  1. COSENTYX [Suspect]
     Active Substance: SECUKINUMAB
     Indication: ANKYLOSING SPONDYLITIS
     Dosage: UNK UNK, QMO
     Route: 058

REACTIONS (4)
  - Mobility decreased [Unknown]
  - Device malfunction [Unknown]
  - Drug ineffective [Unknown]
  - Needle issue [Unknown]
